FAERS Safety Report 11612698 (Version 1)
Quarter: 2015Q4

REPORT INFORMATION
  Report Type: Spontaneous
  Country: FR (occurrence: FR)
  Receive Date: 20151008
  Receipt Date: 20151008
  Transmission Date: 20160304
  Serious: Yes (Hospitalization)
  Sender: FDA-Public Use
  Company Number: FR-ASTRAZENECA-2015SE96080

PATIENT
  Age: 81 Year
  Sex: Female

DRUGS (16)
  1. XEROQUEL [Interacting]
     Active Substance: QUETIAPINE FUMARATE
     Route: 048
     Dates: start: 201508
  2. AMLODIPINE [Concomitant]
     Active Substance: AMLODIPINE BESYLATE
  3. DIFFU K [Concomitant]
     Active Substance: POTASSIUM CHLORIDE
  4. AMIODARONE [Concomitant]
     Active Substance: AMIODARONE
  5. XARELTO [Concomitant]
     Active Substance: RIVAROXABAN
  6. LANTUS [Concomitant]
     Active Substance: INSULIN GLARGINE
  7. DOLIPRANE [Concomitant]
     Active Substance: ACETAMINOPHEN
  8. IXPRIM [Concomitant]
     Active Substance: ACETAMINOPHEN\TRAMADOL HYDROCHLORIDE
  9. XEROQUEL [Suspect]
     Active Substance: QUETIAPINE FUMARATE
     Route: 048
     Dates: start: 201504
  10. EXELON [Concomitant]
     Active Substance: RIVASTIGMINE TARTRATE
  11. FUROSEMIDE. [Concomitant]
     Active Substance: FUROSEMIDE
  12. FORLAX [Concomitant]
     Active Substance: POLYETHYLENE GLYCOL 4000
  13. UVEDOSE [Concomitant]
     Active Substance: CHOLECALCIFEROL
  14. LEVOTHYROX [Interacting]
     Active Substance: LEVOTHYROXINE
     Route: 048
  15. LEVOTHYROX [Interacting]
     Active Substance: LEVOTHYROXINE
     Route: 048
  16. INEXIUM [Concomitant]
     Active Substance: ESOMEPRAZOLE

REACTIONS (2)
  - Drug interaction [Unknown]
  - Thyroid function test abnormal [Unknown]

NARRATIVE: CASE EVENT DATE: 201504
